FAERS Safety Report 6355828-8 (Version None)
Quarter: 2009Q3

REPORT INFORMATION
  Report Type: 
  Country: None (occurrence: None)
  Receive Date: 20090915
  Receipt Date: 20080408
  Transmission Date: 20100115
  Serious: Yes (Other)
  Sender: FDA-Public Use
  Company Number: US-ASTRAZENECA-2007UW09276

PATIENT
  Age: 45 Year
  Sex: Male
  Weight: 95.3 kg

DRUGS (41)
  1. SEROQUEL [Suspect]
     Indication: SCHIZOPHRENIA, PARANOID TYPE
     Route: 048
     Dates: start: 20001024, end: 20061128
  2. SEROQUEL [Suspect]
     Indication: DEPRESSION
     Route: 048
     Dates: start: 20001024, end: 20061128
  3. SEROQUEL [Suspect]
     Route: 048
     Dates: start: 20000101, end: 20070101
  4. SEROQUEL [Suspect]
     Route: 048
     Dates: start: 20000101, end: 20070101
  5. GEODON [Concomitant]
  6. NAVANE [Concomitant]
  7. RISPERDAL [Concomitant]
  8. ZYPREXA [Concomitant]
     Dates: start: 20030101
  9. SERTRALINE HCL [Concomitant]
  10. BUSPIRONE HCL [Concomitant]
  11. VITAMIN E [Concomitant]
  12. ASPIRIN [Concomitant]
  13. HYDROCHLOROTHIAZIDE [Concomitant]
  14. ATORVASTATIN CALCIUM [Concomitant]
  15. ENALAPRIL MALEATE [Concomitant]
  16. METOPROLOL SUCCINATE [Concomitant]
  17. SALSALATE [Concomitant]
  18. MINERAL OIL [Concomitant]
  19. PETROLATUM [Concomitant]
  20. TOLNAFTATE [Concomitant]
  21. ACETAMINOPHEN AND CODEINE PHOSPHATE [Concomitant]
  22. NAPROXEN [Concomitant]
  23. FLUTICASONE [Concomitant]
  24. VENLAFAXINE HCL [Concomitant]
  25. GEMFIBROZIL [Concomitant]
  26. DOCUSATE SODIUM [Concomitant]
  27. GABAPENTIN [Concomitant]
  28. AUGMENTIN [Concomitant]
  29. ATENOLOL [Concomitant]
  30. LIPITOR [Concomitant]
  31. KLONOPIN [Concomitant]
  32. DIPHENHYDRAMINE HCL [Concomitant]
  33. SINEQUAN [Concomitant]
  34. DROPERIDOL [Concomitant]
  35. NITROGLYCERIN [Concomitant]
  36. TRILEPTAL [Concomitant]
  37. BACTRIM [Concomitant]
  38. SUMYCIN [Concomitant]
  39. TRAZODONE [Concomitant]
     Indication: DEPRESSION
     Dosage: 50-100 MG
     Route: 048
     Dates: start: 19990429
  40. TRAZODONE [Concomitant]
     Indication: SEDATION
     Dosage: 50-100 MG
     Route: 048
     Dates: start: 19990429
  41. PREDNISONE [Concomitant]
     Dosage: 10-20 MG
     Route: 048
     Dates: start: 19990429

REACTIONS (5)
  - DIABETES MELLITUS [None]
  - NEUROPATHY PERIPHERAL [None]
  - TARDIVE DYSKINESIA [None]
  - TYPE 2 DIABETES MELLITUS [None]
  - WEIGHT INCREASED [None]
